FAERS Safety Report 7142311-5 (Version None)
Quarter: 2010Q4

REPORT INFORMATION
  Report Type: 
  Country: None (occurrence: None)
  Receive Date: 20101203
  Receipt Date: 20101203
  Transmission Date: 20110411
  Serious: Yes (Hospitalization)
  Sender: FDA-Public Use
  Company Number: None

PATIENT
  Age: 44 Year

DRUGS (2)
  1. SERTRALINE HYDROCHLORIDE [Suspect]
     Indication: POST-TRAUMATIC STRESS DISORDER
     Dosage: 50MG QDAY PO
     Route: 048
  2. TRAZODONE HCL [Suspect]
     Indication: SLEEP DISORDER
     Dosage: 50MG QHS PO
     Route: 048

REACTIONS (4)
  - DISSOCIATION [None]
  - IRRITABILITY [None]
  - SLEEP DISORDER [None]
  - TACHYPHRENIA [None]
